FAERS Safety Report 6649866-5 (Version None)
Quarter: 2010Q1

REPORT INFORMATION
  Report Type: 
  Country: None (occurrence: None)
  Receive Date: 20100325
  Receipt Date: 20100318
  Transmission Date: 20100710
  Serious: Yes (Death, Hospitalization, Other)
  Sender: FDA-Public Use
  Company Number: US-BIOGENIDEC-2007BI020212

PATIENT
  Sex: Female

DRUGS (1)
  1. AVONEX [Suspect]
     Indication: MULTIPLE SCLEROSIS
     Route: 030
     Dates: start: 19961201

REACTIONS (5)
  - BREAST CANCER IN SITU [None]
  - BREAST CYST [None]
  - DEATH [None]
  - MALIGNANT NEOPLASM OF AMPULLA OF VATER [None]
  - PANCREATIC CARCINOMA [None]
